FAERS Safety Report 16410061 (Version 2)
Quarter: 2019Q3

REPORT INFORMATION
  Report Type: Report from Study
  Country: CA (occurrence: CA)
  Receive Date: 20190610
  Receipt Date: 20190717
  Transmission Date: 20191004
  Serious: Yes (Other)
  Sender: FDA-Public Use
  Company Number: CA-JNJFOC-20190608912

PATIENT
  Age: 64 Year
  Sex: Female
  Weight: 86.18 kg

DRUGS (2)
  1. MEZAVANT [Concomitant]
     Active Substance: MESALAMINE
     Route: 065
     Dates: end: 20190430
  2. SIMPONI [Suspect]
     Active Substance: GOLIMUMAB
     Indication: COLITIS ULCERATIVE
     Dosage: STRENGTH = 100 MG
     Route: 058
     Dates: start: 20190131

REACTIONS (3)
  - Colitis ulcerative [Not Recovered/Not Resolved]
  - Melanocytic naevus [Unknown]
  - Dizziness [Recovered/Resolved]

NARRATIVE: CASE EVENT DATE: 2019
